FAERS Safety Report 24321929 (Version 2)
Quarter: 2024Q3

REPORT INFORMATION
  Report Type: Spontaneous
  Country: US (occurrence: US)
  Receive Date: 20240916
  Receipt Date: 20240916
  Transmission Date: 20241017
  Serious: Yes (Hospitalization, Other)
  Sender: GILEAD
  Company Number: US-GILEAD-2024-0687054

PATIENT
  Age: 70 Year
  Sex: Male

DRUGS (2)
  1. VEKLURY [Suspect]
     Active Substance: REMDESIVIR
     Indication: COVID-19
     Dosage: TOOK FOR 5 DAYS
     Route: 065
     Dates: start: 20240203
  2. VEKLURY [Suspect]
     Active Substance: REMDESIVIR
     Dosage: TOOK FOR 5 DAYS
     Route: 065
     Dates: start: 20240712

REACTIONS (2)
  - Hypoxia [Unknown]
  - COVID-19 [Not Recovered/Not Resolved]
